FAERS Safety Report 18875729 (Version 1)
Quarter: 2021Q1

REPORT INFORMATION
  Report Type: Report from Study
  Country: US (occurrence: US)
  Receive Date: 20210210
  Receipt Date: 20210210
  Transmission Date: 20210420
  Serious: Yes (Hospitalization)
  Sender: FDA-Public Use
  Company Number: US-JNJFOC-20201237711

PATIENT
  Age: 63 Year
  Sex: Female
  Weight: 105.78 kg

DRUGS (5)
  1. MACITENTAN [Suspect]
     Active Substance: MACITENTAN
     Indication: PULMONARY ARTERIAL HYPERTENSION
     Route: 048
     Dates: start: 20201214
  2. TADALAFIL. [Concomitant]
     Active Substance: TADALAFIL
  3. SELEXIPAG [Suspect]
     Active Substance: SELEXIPAG
     Indication: PULMONARY ARTERIAL HYPERTENSION
     Route: 048
     Dates: start: 2020
  4. SELEXIPAG [Suspect]
     Active Substance: SELEXIPAG
     Route: 048
     Dates: start: 2020
  5. SELEXIPAG [Suspect]
     Active Substance: SELEXIPAG
     Route: 048
     Dates: start: 2020

REACTIONS (19)
  - Pain [Unknown]
  - Arthralgia [Unknown]
  - Abdominal pain [Unknown]
  - Nausea [Unknown]
  - Diarrhoea [Unknown]
  - Gait disturbance [Unknown]
  - Chills [Unknown]
  - Faeces discoloured [Unknown]
  - Constipation [Unknown]
  - Fatigue [Unknown]
  - Myalgia [Unknown]
  - Pain in extremity [Unknown]
  - Incorrect dose administered [Unknown]
  - Hospitalisation [Unknown]
  - Headache [Unknown]
  - Decreased appetite [Unknown]
  - Pain in jaw [Unknown]
  - Tremor [Unknown]
  - Feeling cold [Unknown]
